FAERS Safety Report 6747462-2 (Version None)
Quarter: 2010Q2

REPORT INFORMATION
  Report Type: 
  Country: None (occurrence: None)
  Receive Date: 20100528
  Receipt Date: 20100521
  Transmission Date: 20101027
  Serious: Yes (Other)
  Sender: FDA-Public Use
  Company Number: US-MERCK-1005USA03156

PATIENT
  Age: 45 Year
  Sex: Female

DRUGS (1)
  1. SINGULAIR [Suspect]
     Indication: ASTHMA EXERCISE INDUCED
     Route: 048
     Dates: start: 20100115, end: 20100205

REACTIONS (6)
  - ABDOMINAL PAIN UPPER [None]
  - ANXIETY [None]
  - CONSTIPATION [None]
  - DEPRESSION [None]
  - DIARRHOEA [None]
  - SUICIDAL IDEATION [None]
